FAERS Safety Report 10197659 (Version 2)
Quarter: 2014Q2

REPORT INFORMATION
  Report Type: Spontaneous
  Country: JP (occurrence: JP)
  Receive Date: 20140527
  Receipt Date: 20140527
  Transmission Date: 20141212
  Serious: Yes (Other)
  Sender: FDA-Public Use
  Company Number: JP-TEVA-478583USA

PATIENT
  Age: 49 Year
  Sex: Male

DRUGS (3)
  1. BENDAMUSTINE [Suspect]
     Indication: PLASMA CELL MYELOMA
  2. DEXAMETHASONE [Suspect]
     Indication: PLASMA CELL MYELOMA
  3. LENALIDOMIDE [Suspect]
     Indication: PLASMA CELL MYELOMA
     Route: 048

REACTIONS (1)
  - Liver disorder [Unknown]
